FAERS Safety Report 4800788-1 (Version None)
Quarter: 2005Q4

REPORT INFORMATION
  Report Type: 
  Country: None (occurrence: None)
  Receive Date: 20051013
  Receipt Date: 20051004
  Transmission Date: 20060501
  Serious: Yes (Death, Life-Threatening)
  Sender: FDA-Public Use
  Company Number: 2005-09-0951

PATIENT
  Age: 22 Year
  Sex: Male
  Weight: 122 kg

DRUGS (6)
  1. PEGINTRON            INJECTABLE [Suspect]
     Indication: HEPATITIS C
     Dosage: 180 MCG SUBCUTANEOUS
     Route: 058
     Dates: start: 20050311, end: 20050807
  2. ALCOHOL [Suspect]
     Dosage: ORAL
     Route: 048
     Dates: start: 20050807, end: 20050807
  3. FLUANXOL [Suspect]
     Indication: DEPRESSION
     Dosage: TID
     Dates: start: 20050311, end: 20050807
  4. ATARAX [Suspect]
     Indication: DEPRESSION
     Dosage: BID
     Dates: start: 20050311, end: 20050807
  5. ZOLPIDEM TARTRATE [Suspect]
     Indication: DEPRESSION
     Dosage: 1 TBL QHS
     Dates: start: 20050311, end: 20050807
  6. NITRAZEPAM [Suspect]
     Indication: DEPRESSION
     Dosage: HS
     Dates: start: 20050311, end: 20050807

REACTIONS (5)
  - ALCOHOL POISONING [None]
  - CONDITION AGGRAVATED [None]
  - DEPRESSION [None]
  - DRUG TOXICITY [None]
  - DYSPNOEA [None]
